FAERS Safety Report 6676192-0 (Version None)
Quarter: 2010Q2

REPORT INFORMATION
  Report Type: 
  Country: None (occurrence: None)
  Receive Date: 20100412
  Receipt Date: 20100401
  Transmission Date: 20101027
  Serious: Yes (Other)
  Sender: FDA-Public Use
  Company Number: US-JNJFOC-20100107568

PATIENT
  Sex: Female
  Weight: 138.8 kg

DRUGS (11)
  1. REMICADE [Suspect]
     Indication: RHEUMATOID ARTHRITIS
     Route: 042
     Dates: end: 20100123
  2. REMICADE [Suspect]
     Route: 042
     Dates: end: 20100123
  3. REMICADE [Suspect]
     Route: 042
     Dates: end: 20100123
  4. REMICADE [Suspect]
     Route: 042
     Dates: end: 20100123
  5. REMICADE [Suspect]
     Route: 042
     Dates: end: 20100123
  6. REMICADE [Suspect]
     Route: 042
     Dates: end: 20100123
  7. REMICADE [Suspect]
     Route: 042
     Dates: end: 20100123
  8. REMICADE [Suspect]
     Route: 042
     Dates: end: 20100123
  9. REMICADE [Suspect]
     Route: 042
     Dates: end: 20100123
  10. REMICADE [Suspect]
     Route: 042
     Dates: end: 20100123
  11. REMICADE [Suspect]
     Route: 042
     Dates: end: 20100123

REACTIONS (1)
  - BREAST CANCER [None]
